FAERS Safety Report 4707410-3 (Version None)
Quarter: 2005Q3

REPORT INFORMATION
  Report Type: 
  Country: None (occurrence: None)
  Receive Date: 20050706
  Receipt Date: 20050623
  Transmission Date: 20060218
  Serious: No
  Sender: FDA-Public Use
  Company Number: 2005GB01230

PATIENT
  Sex: Female

DRUGS (1)
  1. SEROQUEL [Suspect]
     Dosage: ON SEROQUEL AT LEAST ONE YEAR
     Route: 048
     Dates: start: 20040101

REACTIONS (1)
  - NEUTROPENIA [None]
